FAERS Safety Report 8903138 (Version 2)
Quarter: 2012Q4

REPORT INFORMATION
  Report Type: 
  Country: FR (occurrence: FR)
  Receive Date: 20121112
  Receipt Date: 20121116
  Transmission Date: 20130627
  Serious: Yes (Hospitalization, Other)
  Sender: FDA-Public Use
  Company Number: FR-BAYER-2012-116150

PATIENT
  Age: 62 Year
  Sex: Male

DRUGS (3)
  1. NEXAVAR [Suspect]
     Indication: RENAL CLEAR CELL CARCINOMA
     Dosage: 400 mg, BID
     Route: 048
     Dates: start: 20120703, end: 20120721
  2. NEXAVAR [Suspect]
     Indication: RENAL CLEAR CELL CARCINOMA
     Dosage: UNK
     Dates: start: 201208, end: 201209
  3. TORISEL [Concomitant]

REACTIONS (2)
  - Psychiatric decompensation [Recovering/Resolving]
  - Renal cell carcinoma [None]
